FAERS Safety Report 25708577 (Version 1)
Quarter: 2025Q3

REPORT INFORMATION
  Report Type: Spontaneous
  Country: CN (occurrence: CN)
  Receive Date: 20250821
  Receipt Date: 20250821
  Transmission Date: 20251020
  Serious: Yes (Hospitalization)
  Sender: BEIGENE
  Company Number: CN-BEIGENE-BGN-2025-013626

PATIENT
  Age: 76 Year
  Weight: 55 kg

DRUGS (16)
  1. TISLELIZUMAB [Suspect]
     Active Substance: TISLELIZUMAB
     Indication: Lung neoplasm malignant
  2. TISLELIZUMAB [Suspect]
     Active Substance: TISLELIZUMAB
     Route: 041
  3. TISLELIZUMAB [Suspect]
     Active Substance: TISLELIZUMAB
     Route: 041
  4. TISLELIZUMAB [Suspect]
     Active Substance: TISLELIZUMAB
  5. ETOPOSIDE [Concomitant]
     Active Substance: ETOPOSIDE
     Indication: Lung neoplasm malignant
  6. ETOPOSIDE [Concomitant]
     Active Substance: ETOPOSIDE
     Route: 041
  7. ETOPOSIDE [Concomitant]
     Active Substance: ETOPOSIDE
     Route: 041
  8. ETOPOSIDE [Concomitant]
     Active Substance: ETOPOSIDE
  9. LOBAPLATIN [Concomitant]
     Active Substance: LOBAPLATIN
     Indication: Lung neoplasm malignant
  10. LOBAPLATIN [Concomitant]
     Active Substance: LOBAPLATIN
     Route: 041
  11. LOBAPLATIN [Concomitant]
     Active Substance: LOBAPLATIN
     Route: 041
  12. LOBAPLATIN [Concomitant]
     Active Substance: LOBAPLATIN
  13. SODIUM CHLORIDE [Concomitant]
     Active Substance: SODIUM CHLORIDE
     Indication: Vehicle solution use
  14. SODIUM CHLORIDE [Concomitant]
     Active Substance: SODIUM CHLORIDE
     Route: 041
  15. SODIUM CHLORIDE [Concomitant]
     Active Substance: SODIUM CHLORIDE
     Route: 041
  16. SODIUM CHLORIDE [Concomitant]
     Active Substance: SODIUM CHLORIDE

REACTIONS (2)
  - Chills [Recovering/Resolving]
  - Pyrexia [Unknown]
